FAERS Safety Report 20393721 (Version 4)
Quarter: 2022Q1

REPORT INFORMATION
  Report Type: Spontaneous
  Country: US (occurrence: US)
  Receive Date: 20220128
  Receipt Date: 20220330
  Transmission Date: 20220423
  Serious: Yes (Other)
  Sender: FDA-Public Use
  Company Number: US-SEPTODONT-2022006726

PATIENT
  Age: 80 Year
  Sex: Female

DRUGS (2)
  1. SEPTOCAINE [Suspect]
     Active Substance: ARTICAINE HYDROCHLORIDE\EPINEPHRINE BITARTRATE
     Indication: Dental local anaesthesia
     Dosage: MORE THAN 2 CARPULES
     Route: 004
     Dates: start: 20211207, end: 20211207
  2. SEPTOCAINE [Suspect]
     Active Substance: ARTICAINE HYDROCHLORIDE\EPINEPHRINE BITARTRATE
     Indication: Dental local anaesthesia
     Dosage: MORE THAN 2 CARPULES
     Route: 004
     Dates: start: 20211207, end: 20211207

REACTIONS (10)
  - Loss of consciousness [Recovering/Resolving]
  - Fall [Unknown]
  - Faeces discoloured [Recovering/Resolving]
  - Dyspnoea [Recovering/Resolving]
  - Hot flush [Recovering/Resolving]
  - Chills [Recovering/Resolving]
  - Palpitations [Recovering/Resolving]
  - Hypoaesthesia oral [Recovering/Resolving]
  - Dizziness [Unknown]
  - Confusional state [Unknown]

NARRATIVE: CASE EVENT DATE: 20211207
